FAERS Safety Report 25037561 (Version 1)
Quarter: 2025Q1

REPORT INFORMATION
  Report Type: Spontaneous
  Country: US (occurrence: None)
  Receive Date: 20250304
  Receipt Date: 20250304
  Transmission Date: 20250409
  Serious: No
  Sender: FDA-CTU
  Company Number: None

PATIENT
  Age: 22 Year
  Sex: Female
  Weight: 49.5 kg

DRUGS (6)
  1. DROSPIRENONE AND ESTETROL [Suspect]
     Active Substance: DROSPIRENONE\ESTETROL MONOHYDRATE
     Indication: Dysmenorrhoea
     Dosage: 1 TABLET DAILY ORAL
     Route: 048
  2. DROSPIRENONE AND ESTETROL [Suspect]
     Active Substance: DROSPIRENONE\ESTETROL MONOHYDRATE
     Indication: Back pain
  3. birth control piss [Concomitant]
  4. MAGNESIUM [Concomitant]
     Active Substance: MAGNESIUM
  5. ZINC [Concomitant]
     Active Substance: ZINC
  6. CALCIUM [Concomitant]
     Active Substance: CALCIUM

REACTIONS (4)
  - Affective disorder [None]
  - Breast tenderness [None]
  - Libido decreased [None]
  - Menstruation irregular [None]

NARRATIVE: CASE EVENT DATE: 20250213
